FAERS Safety Report 7687007-6 (Version None)
Quarter: 2011Q3

REPORT INFORMATION
  Report Type: 
  Country: None (occurrence: None)
  Receive Date: 20110816
  Receipt Date: 20110812
  Transmission Date: 20111222
  Serious: Yes (Hospitalization)
  Sender: FDA-Public Use
  Company Number: JP-ABBOTT-10P-087-0692556-00

PATIENT
  Sex: Male
  Weight: 55 kg

DRUGS (6)
  1. HUMIRA [Suspect]
     Indication: CROHN'S DISEASE
     Route: 058
     Dates: start: 20101222
  2. MESALAMINE [Concomitant]
     Indication: CROHN'S DISEASE
     Route: 048
  3. AZATHIOPRINE [Concomitant]
     Indication: CROHN'S DISEASE
  4. FERROUS CITRATE [Concomitant]
     Indication: ANAEMIA
     Route: 048
  5. HUMIRA [Suspect]
     Dates: start: 20101208, end: 20101208
  6. HUMIRA [Suspect]
     Dates: start: 20101124, end: 20101124

REACTIONS (6)
  - CALCULUS URETERIC [None]
  - HYDRONEPHROSIS [None]
  - RENAL FAILURE ACUTE [None]
  - SUBILEUS [None]
  - PYREXIA [None]
  - NEPHROLITHIASIS [None]
